FAERS Safety Report 9912279 (Version 8)
Quarter: 2015Q2

REPORT INFORMATION
  Report Type: Report from Study
  Country: US (occurrence: US)
  Receive Date: 20140220
  Receipt Date: 20150609
  Transmission Date: 20150821
  Serious: Yes (Hospitalization)
  Sender: FDA-Public Use
  Company Number: US-BIOGENIDEC-2014BI016228

PATIENT
  Age: 59 Year
  Sex: Male

DRUGS (3)
  1. AVONEX [Suspect]
     Active Substance: INTERFERON BETA-1A
     Indication: MULTIPLE SCLEROSIS
     Route: 030
     Dates: start: 20140323
  2. AVONEX [Suspect]
     Active Substance: INTERFERON BETA-1A
     Indication: MULTIPLE SCLEROSIS
     Route: 030
  3. AVONEX [Suspect]
     Active Substance: INTERFERON BETA-1A
     Indication: MULTIPLE SCLEROSIS
     Route: 030
     Dates: start: 20080316, end: 20131124

REACTIONS (12)
  - Pneumothorax [Recovered/Resolved]
  - Renal vascular thrombosis [Recovered/Resolved]
  - Thrombophlebitis [Recovered/Resolved]
  - Laceration [Recovered/Resolved]
  - Type 2 diabetes mellitus [Not Recovered/Not Resolved]
  - Umbilical hernia [Recovered/Resolved]
  - Liver abscess [Recovered/Resolved]
  - Hepatic vascular thrombosis [Recovered/Resolved]
  - Renal abscess [Recovered/Resolved]
  - Intracardiac thrombus [Recovered/Resolved]
  - Dehydration [Recovered/Resolved]
  - Cholecystitis [Recovered/Resolved]

NARRATIVE: CASE EVENT DATE: 2010
